FAERS Safety Report 8300529 (Version 3)
Quarter: 2012Q4

REPORT INFORMATION
  Report Type: 
  Country: US (occurrence: US)
  Receive Date: 20111219
  Receipt Date: 20121023
  Transmission Date: 20130627
  Serious: Yes (Other)
  Sender: FDA-Public Use
  Company Number: US-PFIZER INC-2011303865

PATIENT
  Age: 68 Year
  Sex: Female
  Weight: 74.83 kg

DRUGS (8)
  1. ATORVASTATIN CALCIUM [Suspect]
     Indication: BLOOD CHOLESTEROL INCREASED
     Dosage: 20 mg, daily
     Dates: start: 20111212, end: 20111212
  2. BENADRYL [Suspect]
     Indication: OEDEMA MOUTH
     Dosage: UNK
     Dates: start: 20111212
  3. BENADRYL [Suspect]
     Indication: LIP SWELLING
  4. BENADRYL [Suspect]
     Indication: SWOLLEN TONGUE
  5. BENADRYL [Suspect]
     Indication: PHARYNGEAL OEDEMA
  6. EPIPEN [Concomitant]
     Indication: HYPERSENSITIVITY
     Dosage: UNK
  7. HYDROCHLOROTHIAZIDE [Concomitant]
     Indication: HYPERTENSION
     Dosage: 25 mg, daily
  8. LEVOTHYROXINE [Concomitant]
     Indication: HYPOTHYROIDISM
     Dosage: 100 ug,daily

REACTIONS (7)
  - Oedema mouth [Recovered/Resolved]
  - Lip swelling [Recovered/Resolved]
  - Swollen tongue [Recovered/Resolved]
  - Pharyngeal oedema [Recovered/Resolved]
  - Drug ineffective [Unknown]
  - Paraesthesia oral [Recovering/Resolving]
  - Alopecia [Unknown]
